FAERS Safety Report 5201899-1 (Version None)
Quarter: 2006Q4

REPORT INFORMATION
  Report Type: 
  Country: None (occurrence: None)
  Receive Date: 20061010
  Receipt Date: 20060110
  Transmission Date: 20070319
  Serious: Yes (Hospitalization)
  Sender: FDA-Public Use
  Company Number: 2006-01-0724

PATIENT
  Age: 42 Year
  Sex: Female

DRUGS (3)
  1. TEMODAR [Suspect]
     Indication: BRAIN NEOPLASM
     Dosage: 200-100 MG ORAL, SEE IMAGE
     Route: 048
     Dates: start: 20051122, end: 20051221
  2. RADIATION THERAPY NO DOSE FORM [Suspect]
     Indication: BRAIN NEOPLASM
     Dosage: X-RAY THERAPY
  3. KEPPRA [Concomitant]

REACTIONS (3)
  - MOUTH ULCERATION [None]
  - PANCYTOPENIA [None]
  - PYREXIA [None]
